FAERS Safety Report 6691008-4 (Version None)
Quarter: 2010Q2

REPORT INFORMATION
  Report Type: 
  Country: None (occurrence: None)
  Receive Date: 20100421
  Receipt Date: 20100414
  Transmission Date: 20101027
  Serious: Yes (Death, Hospitalization)
  Sender: FDA-Public Use
  Company Number: GB-MERCK-1004GBR00040

PATIENT
  Age: 45 Year
  Sex: Male

DRUGS (3)
  1. ZOCOR [Suspect]
     Route: 048
  2. ACYCLOVIR [Suspect]
     Route: 065
  3. CLARITHROMYCIN [Concomitant]
     Route: 065

REACTIONS (4)
  - DEATH [None]
  - DRUG INTERACTION [None]
  - GENERAL SYMPTOM [None]
  - PYREXIA [None]
